FAERS Safety Report 24531205 (Version 2)
Quarter: 2024Q4

REPORT INFORMATION
  Report Type: Spontaneous
  Country: US (occurrence: US)
  Receive Date: 20241022
  Receipt Date: 20241029
  Transmission Date: 20250114
  Serious: No
  Sender: MSN LABORATORIES PRIVATE LIMITED
  Company Number: US-MSNLABS-2024MSNSPO02224

PATIENT

DRUGS (1)
  1. PIRFENIDONE [Suspect]
     Active Substance: PIRFENIDONE
     Indication: Idiopathic pulmonary fibrosis
     Dosage: THREE TIMES A DAY
     Route: 065
     Dates: start: 202311

REACTIONS (4)
  - Product taste abnormal [Unknown]
  - Product substitution issue [Unknown]
  - Pruritus [Recovered/Resolved]
  - Rash [Recovered/Resolved]
